FAERS Safety Report 20043195 (Version 2)
Quarter: 2022Q1

REPORT INFORMATION
  Report Type: Spontaneous
  Country: US (occurrence: US)
  Receive Date: 20211108
  Receipt Date: 20220105
  Transmission Date: 20220423
  Serious: No
  Sender: FDA-Public Use
  Company Number: US-SHIONOGI INC.-2021000278

PATIENT
  Sex: Male

DRUGS (1)
  1. MULPLETA [Suspect]
     Active Substance: LUSUTROMBOPAG
     Indication: Product used for unknown indication
     Dosage: 3 MG
     Route: 065
     Dates: start: 20210628, end: 20210705

REACTIONS (1)
  - Drug ineffective [Unknown]
